FAERS Safety Report 20483650 (Version 1)
Quarter: 2022Q1

REPORT INFORMATION
  Report Type: Spontaneous
  Country: US (occurrence: US)
  Receive Date: 20220217
  Receipt Date: 20220217
  Transmission Date: 20220423
  Serious: No
  Sender: FDA-Public Use
  Company Number: US-BIOGEN-2022BI01095677

PATIENT
  Sex: Male

DRUGS (1)
  1. TECFIDERA [Suspect]
     Active Substance: DIMETHYL FUMARATE
     Indication: Multiple sclerosis
     Route: 065
     Dates: start: 20160729

REACTIONS (6)
  - Drug ineffective [Unknown]
  - Impaired healing [Unknown]
  - Muscular weakness [Unknown]
  - Joint injury [Unknown]
  - Myalgia [Unknown]
  - Fall [Recovered/Resolved]
